FAERS Safety Report 4991874-4 (Version None)
Quarter: 2006Q2

REPORT INFORMATION
  Report Type: 
  Country: None (occurrence: None)
  Receive Date: 20060504
  Receipt Date: 20051027
  Transmission Date: 20061013
  Serious: Yes (Hospitalization, Other)
  Sender: FDA-Public Use
  Company Number: US-MERCK-0510USA09429

PATIENT
  Sex: Female

DRUGS (1)
  1. VIOXX [Suspect]
     Indication: ARTHRITIS
     Route: 048
     Dates: start: 20010101, end: 20030101

REACTIONS (8)
  - BRAIN STEM INFARCTION [None]
  - GASTROOESOPHAGEAL REFLUX DISEASE [None]
  - HYPERCHOLESTEROLAEMIA [None]
  - ISCHAEMIC CEREBRAL INFARCTION [None]
  - LACUNAR INFARCTION [None]
  - OSTEOPENIA [None]
  - POSTMENOPAUSE [None]
  - TRANSIENT ISCHAEMIC ATTACK [None]
